FAERS Safety Report 8569359-8 (Version None)
Quarter: 2012Q3

REPORT INFORMATION
  Report Type: 
  Country: None (occurrence: None)
  Receive Date: 20120803
  Receipt Date: 20120229
  Transmission Date: 20120928
  Serious: No
  Sender: FDA-Public Use
  Company Number: US-ABBOTT-12P-163-0909853-00

PATIENT
  Sex: Male
  Weight: 93.07 kg

DRUGS (3)
  1. CHOLESTEROL [Concomitant]
     Indication: BLOOD CHOLESTEROL
  2. SYNTHROID [Concomitant]
     Indication: PRODUCT USED FOR UNKNOWN INDICATION
  3. NIASPAN [Suspect]
     Indication: LOW DENSITY LIPOPROTEIN INCREASED
     Dosage: DAILY

REACTIONS (2)
  - PRURITUS [None]
  - PRURITUS GENERALISED [None]
